FAERS Safety Report 10668380 (Version 2)
Quarter: 2015Q1

REPORT INFORMATION
  Report Type: Spontaneous
  Country: None (occurrence: None)
  Receive Date: 20141217
  Receipt Date: 20150319
  Transmission Date: 20150720
  Serious: Yes (Other)
  Sender: FDA-Public Use
  Company Number: 2014CT000157

PATIENT
  Age: 64 Year
  Sex: Female
  Weight: 90.72 kg

DRUGS (15)
  1. CALTRATE /00944201/ [Concomitant]
  2. JANUMET [Concomitant]
     Active Substance: METFORMIN HYDROCHLORIDE\SITAGLIPTIN PHOSPHATE
  3. COUMADIN [Concomitant]
     Active Substance: WARFARIN SODIUM
  4. WELCHOL [Concomitant]
     Active Substance: COLESEVELAM HYDROCHLORIDE
  5. ALPRAZOLAM. [Concomitant]
     Active Substance: ALPRAZOLAM
  6. POTASSIUM [Concomitant]
     Active Substance: POTASSIUM
  7. VITAMIN D [Concomitant]
     Active Substance: CHOLECALCIFEROL
  8. KORLYM [Suspect]
     Active Substance: MIFEPRISTONE
     Indication: CUSHING^S SYNDROME
     Route: 048
     Dates: start: 20140913, end: 201410
  9. NEXIUM [Concomitant]
     Active Substance: ESOMEPRAZOLE MAGNESIUM
  10. SPIRONOLACTONE. [Concomitant]
     Active Substance: SPIRONOLACTONE
  11. LOSARTAN [Concomitant]
     Active Substance: LOSARTAN
  12. KORLYM [Suspect]
     Active Substance: MIFEPRISTONE
     Indication: TYPE 2 DIABETES MELLITUS
     Route: 048
     Dates: start: 20140913, end: 201410
  13. COMBIGAN [Concomitant]
     Active Substance: BRIMONIDINE TARTRATE\TIMOLOL MALEATE
  14. EFFEXOR [Concomitant]
     Active Substance: VENLAFAXINE HYDROCHLORIDE
  15. ULTRACET [Concomitant]
     Active Substance: ACETAMINOPHEN\TRAMADOL HYDROCHLORIDE

REACTIONS (8)
  - Arthralgia [None]
  - Gait disturbance [None]
  - Nerve compression [None]
  - International normalised ratio increased [None]
  - Myalgia [None]
  - Pain in extremity [None]
  - Muscular weakness [None]
  - Prothrombin time prolonged [None]

NARRATIVE: CASE EVENT DATE: 20140919
